FAERS Safety Report 8096682-6 (Version None)
Quarter: 2012Q1

REPORT INFORMATION
  Report Type: 
  Country: None (occurrence: None)
  Receive Date: 20120129
  Receipt Date: 20111130
  Transmission Date: 20120608
  Serious: No
  Sender: FDA-Public Use
  Company Number: US-ABBOTT-11P-163-0880317-00

PATIENT
  Sex: Female

DRUGS (2)
  1. HUMIRA [Suspect]
     Route: 058
     Dates: start: 20110701
  2. HUMIRA [Suspect]
     Indication: CROHN'S DISEASE
     Route: 058
     Dates: end: 20110701

REACTIONS (6)
  - RED BLOOD CELL SEDIMENTATION RATE INCREASED [None]
  - CROHN'S DISEASE [None]
  - INFLAMMATION [None]
  - FATIGUE [None]
  - GASTROINTESTINAL PAIN [None]
  - DIARRHOEA [None]
